FAERS Safety Report 21438883 (Version 2)
Quarter: 2022Q4

REPORT INFORMATION
  Report Type: Report from Study
  Country: IT (occurrence: IT)
  Receive Date: 20221011
  Receipt Date: 20221028
  Transmission Date: 20230112
  Serious: No
  Sender: FDA-Public Use
  Company Number: None

PATIENT
  Age: 67 Year
  Sex: Male
  Weight: 67 kg

DRUGS (3)
  1. OXALIPLATIN [Suspect]
     Active Substance: OXALIPLATIN
     Indication: Malignant neoplasm of ampulla of Vater
     Dosage: 239.2 MG OF OXALIPLATIN ON 26/08/2022 (DAY 1 OF THE 21 DAY THERAPY CYCLE)
     Dates: start: 20220826, end: 20220826
  2. CAPECITABINE [Suspect]
     Active Substance: CAPECITABINE
     Indication: Malignant neoplasm of ampulla of Vater
     Dosage: THE PATIENT TOOK 2500 MG OF CAPECITABINE PER DAY FOR 14 DAYS
     Dates: start: 20220826, end: 20220908
  3. LANSOPRAZOLE [Concomitant]
     Active Substance: LANSOPRAZOLE
     Dosage: THE PATIENT TAKES 30 MG OF LANSOPRAZOLE 1 TIME PER DAY

REACTIONS (3)
  - Vomiting [Recovered/Resolved]
  - Nausea [Recovered/Resolved]
  - Pyrexia [Recovered/Resolved]

NARRATIVE: CASE EVENT DATE: 20220826
